FAERS Safety Report 9369695 (Version 2)
Quarter: 2013Q3

REPORT INFORMATION
  Report Type: Spontaneous
  Country: JP (occurrence: JP)
  Receive Date: 20130626
  Receipt Date: 20130715
  Transmission Date: 20140515
  Serious: No
  Sender: FDA-Public Use
  Company Number: JP-JNJFOC-20130616035

PATIENT
  Age: 70 Year
  Sex: Male

DRUGS (1)
  1. FINIBAX [Suspect]
     Indication: ENTEROCOLITIS BACTERIAL
     Route: 041
     Dates: start: 20130605, end: 20130612

REACTIONS (1)
  - Pseudomembranous colitis [Recovered/Resolved]
